FAERS Safety Report 5123880-3 (Version None)
Quarter: 2006Q4

REPORT INFORMATION
  Report Type: 
  Country: None (occurrence: None)
  Receive Date: 20061010
  Receipt Date: 20060920
  Transmission Date: 20070319
  Serious: Yes (Death, Life-Threatening)
  Sender: FDA-Public Use
  Company Number: DE-GLAXOSMITHKLINE-D0050944A

PATIENT
  Age: 38 Year
  Sex: Male
  Weight: 65 kg

DRUGS (3)
  1. EPIVIR [Suspect]
     Indication: HEPATITIS CHRONIC ACTIVE
     Dosage: 150MG PER DAY
     Route: 065
     Dates: start: 20060919, end: 20060921
  2. RANITIDINE [Concomitant]
     Indication: PROPHYLAXIS
     Dosage: 300MG PER DAY
     Route: 048
     Dates: start: 20060801, end: 20060921
  3. IMATINIB [Concomitant]
     Route: 065
     Dates: end: 20060903

REACTIONS (4)
  - HYPOGLYCAEMIA [None]
  - NEUTROPENIA [None]
  - PNEUMONIA [None]
  - SEPSIS [None]
